FAERS Safety Report 8416855-X (Version None)
Quarter: 2012Q2

REPORT INFORMATION
  Report Type: 
  Country: None (occurrence: None)
  Receive Date: 20120606
  Receipt Date: 20120523
  Transmission Date: 20120825
  Serious: Yes (Death, Hospitalization)
  Sender: FDA-Public Use
  Company Number: KR-BRISTOL-MYERS SQUIBB COMPANY-16603557

PATIENT
  Age: 68 Year
  Sex: Male
  Weight: 162 kg

DRUGS (3)
  1. GEMCITABINE HYDROCHLORIDE [Suspect]
     Indication: NON-SMALL CELL LUNG CANCER
     Dosage: INF:10 LAST INF ON 02MAR2012
     Route: 042
     Dates: start: 20111103
  2. CISPLATIN [Suspect]
     Indication: NON-SMALL CELL LUNG CANCER
     Dosage: INF:6 LAST INF ON 23FEB2012
     Route: 042
     Dates: start: 20111103
  3. NECITUMUMAB [Suspect]
     Indication: NON-SMALL CELL LUNG CANCER
     Dosage: LIQUID LAST INF ON 25APR12 INF:18
     Route: 042
     Dates: start: 20111103

REACTIONS (2)
  - INTERSTITIAL LUNG DISEASE [None]
  - PNEUMONIA [None]
